FAERS Safety Report 17494316 (Version 3)
Quarter: 2020Q2

REPORT INFORMATION
  Report Type: Spontaneous
  Country: US (occurrence: US)
  Receive Date: 20200304
  Receipt Date: 20200409
  Transmission Date: 20200713
  Serious: Yes (Other)
  Sender: FDA-Public Use
  Company Number: US-CELGENEUS-USA-20200300283

PATIENT
  Sex: Female

DRUGS (1)
  1. OTEZLA [Suspect]
     Active Substance: APREMILAST
     Indication: BEHCET^S SYNDROME
     Dosage: 60 MILLIGRAM
     Route: 048
     Dates: start: 20191115

REACTIONS (6)
  - Disorientation [Unknown]
  - Hallucination [Unknown]
  - Memory impairment [Unknown]
  - Agitation [Unknown]
  - Confusional state [Unknown]
  - Mood swings [Unknown]

NARRATIVE: CASE EVENT DATE: 2019
